FAERS Safety Report 5806435-4 (Version None)
Quarter: 2008Q3

REPORT INFORMATION
  Report Type: 
  Country: None (occurrence: None)
  Receive Date: 20080708
  Receipt Date: 20080625
  Transmission Date: 20090109
  Serious: Yes (Hospitalization, Other)
  Sender: FDA-Public Use
  Company Number: 2008S1011089

PATIENT
  Age: 70 Year
  Sex: Female

DRUGS (10)
  1. FENTANYL TRANSDERMAL SYSTEM [Suspect]
     Indication: GASTROINTESTINAL PAIN
     Dosage: 50 UG; EVERY HOUR; TRANSDERMAL
     Route: 062
     Dates: start: 20080505
  2. FENTANYL TRANSDERMAL SYSTEM [Suspect]
     Indication: GASTROINTESTINAL PAIN
     Dosage: 12 UG; EVERY HOUR; TRANSDERMAL
     Route: 062
     Dates: start: 20080423
  3. PREDNISONE TAB [Concomitant]
  4. PLAQUENIL /00072601/ [Concomitant]
  5. SYNTHROID [Concomitant]
  6. RESTORIL /00393701 [Concomitant]
  7. CIPROFLOXACIN [Concomitant]
  8. DILAUDID [Concomitant]
  9. METRONIDAZOLE HCL [Concomitant]
  10. ASPIRIN [Concomitant]

REACTIONS (5)
  - ABDOMINAL PAIN UPPER [None]
  - ABSCESS [None]
  - RECTAL HAEMORRHAGE [None]
  - VOMITING [None]
  - WRONG TECHNIQUE IN DRUG USAGE PROCESS [None]
